FAERS Safety Report 22618840 (Version 1)
Quarter: 2023Q2

REPORT INFORMATION
  Report Type: Spontaneous
  Country: MY (occurrence: MY)
  Receive Date: 20230620
  Receipt Date: 20230620
  Transmission Date: 20230722
  Serious: Yes (Other)
  Sender: FDA-Public Use
  Company Number: MY-002147023-NVSC2023MY135860

PATIENT
  Age: 54 Year
  Sex: Male

DRUGS (1)
  1. RANIBIZUMAB [Suspect]
     Active Substance: RANIBIZUMAB
     Indication: Diabetic retinal oedema
     Dosage: 0.5 ML, QMO (FORM STRENGTH: 10 MILLIGRAM PER MILLILITRE)
     Route: 031

REACTIONS (1)
  - Hemiparesis [Recovering/Resolving]
